FAERS Safety Report 6929808-5 (Version None)
Quarter: 2010Q3

REPORT INFORMATION
  Report Type: 
  Country: None (occurrence: None)
  Receive Date: 20100813
  Receipt Date: 20100730
  Transmission Date: 20110219
  Serious: Yes (Death)
  Sender: FDA-Public Use
  Company Number: 2010002530

PATIENT
  Age: 64 Year
  Sex: Male

DRUGS (5)
  1. TARCEVA [Suspect]
     Indication: NON-SMALL CELL LUNG CANCER
     Dosage: (150 MG, QD), ORAL
     Route: 048
     Dates: start: 20100409, end: 20100526
  2. ENALAPRIL MALEATE [Concomitant]
  3. BISOPROLOL FUMARATE [Concomitant]
  4. METHYLPREDNISOLONE [Concomitant]
  5. VALPROATE SODIUM [Concomitant]

REACTIONS (2)
  - ANURIA [None]
  - DIARRHOEA [None]
